FAERS Safety Report 7484263-4 (Version None)
Quarter: 2011Q2

REPORT INFORMATION
  Report Type: 
  Country: None (occurrence: None)
  Receive Date: 20110517
  Receipt Date: 20100930
  Transmission Date: 20111010
  Serious: No
  Sender: FDA-Public Use
  Company Number: US-BAYER-201038370NA

PATIENT
  Age: 19 Year
  Sex: Female

DRUGS (6)
  1. ULTRAM [Concomitant]
     Dosage: 100 MG, UNK
     Route: 048
     Dates: start: 20060927
  2. YAZ [Suspect]
     Indication: ACNE
  3. DROSPIRENONE AND ETHINYL ESTRADIOL [Suspect]
     Indication: ACNE
  4. YASMIN [Suspect]
     Indication: ACNE
  5. IBUPROFEN [Concomitant]
     Indication: ABDOMINAL PAIN
  6. NEXIUM [Concomitant]
     Indication: GASTROOESOPHAGEAL REFLUX DISEASE
     Dosage: 40 MG, UNK
     Route: 048

REACTIONS (2)
  - INJURY [None]
  - PAIN [None]
